FAERS Safety Report 24120170 (Version 1)
Quarter: 2024Q3

REPORT INFORMATION
  Report Type: Spontaneous
  Country: CN (occurrence: CN)
  Receive Date: 20240722
  Receipt Date: 20240722
  Transmission Date: 20241017
  Serious: Yes (Other)
  Sender: PFIZER
  Company Number: CN-PFIZER INC-PV202400094189

PATIENT
  Age: 35 Year
  Sex: Female
  Weight: 51 kg

DRUGS (4)
  1. LINEZOLID [Suspect]
     Active Substance: LINEZOLID
     Indication: Staphylococcal infection
     Dosage: UNK
     Dates: start: 20240531
  2. LINEZOLID [Suspect]
     Active Substance: LINEZOLID
     Dosage: 0.6 G, 2X/DAY
     Dates: start: 20240626
  3. PIPERACILLIN AND TAZOBACTAM [Suspect]
     Active Substance: PIPERACILLIN SODIUM\TAZOBACTAM SODIUM
     Indication: Staphylococcal infection
     Dosage: 4.5 G, 3X/DAY
     Route: 041
     Dates: start: 20240626, end: 20240701
  4. MEROPENEM [Concomitant]
     Active Substance: MEROPENEM
     Indication: Staphylococcal infection
     Dosage: UNK
     Dates: start: 20240531, end: 20240626

REACTIONS (3)
  - Macule [Recovering/Resolving]
  - Pruritus [Recovering/Resolving]
  - Drug hypersensitivity [Recovering/Resolving]

NARRATIVE: CASE EVENT DATE: 20240701
